FAERS Safety Report 14467451 (Version 3)
Quarter: 2018Q2

REPORT INFORMATION
  Report Type: Spontaneous
  Country: US (occurrence: US)
  Receive Date: 20180131
  Receipt Date: 20180613
  Transmission Date: 20180711
  Serious: Yes (Other)
  Sender: FDA-Public Use
  Company Number: US-BAYER-2018-016113

PATIENT
  Age: 67 Year
  Sex: Male

DRUGS (16)
  1. ASPIRIN. [Concomitant]
     Active Substance: ASPIRIN
     Dosage: 81 MG DAILY
     Route: 048
     Dates: start: 20171013
  2. MULTIVITAMIN [Concomitant]
     Active Substance: VITAMINS
     Dosage: 1 TABLET DAILY
     Route: 048
     Dates: start: 20171013
  3. VITAMIN D [Concomitant]
     Active Substance: CHOLECALCIFEROL
     Dosage: 1000 UNITS DAILY
     Route: 048
     Dates: start: 20171013
  4. XOFIGO [Suspect]
     Active Substance: RADIUM RA-223 DICHLORIDE
     Indication: METASTASES TO BONE
     Dosage: UNK
     Dates: start: 20180117, end: 20180117
  5. LUPRON [Concomitant]
     Active Substance: LEUPROLIDE ACETATE
     Dosage: EVERY 3 MONTHS
     Route: 030
     Dates: start: 20171013
  6. MAGNESIUM [Concomitant]
     Active Substance: MAGNESIUM
     Dosage: 250 MG DAILY
     Route: 048
     Dates: start: 20171013
  7. XOFIGO [Suspect]
     Active Substance: RADIUM RA-223 DICHLORIDE
     Indication: METASTASES TO BONE
     Dosage: UNK
     Dates: start: 20171027, end: 20171027
  8. CRESTOR [Concomitant]
     Active Substance: ROSUVASTATIN CALCIUM
     Dosage: 5 MG DAILY
     Route: 048
     Dates: start: 20171013
  9. DOXYCYCLINE. [Concomitant]
     Active Substance: DOXYCYCLINE
     Dosage: 20 MG DAILY
     Route: 048
     Dates: start: 20171013
  10. ABIRATERONE [Concomitant]
     Active Substance: ABIRATERONE
     Dosage: UNK
     Dates: end: 201711
  11. XOFIGO [Suspect]
     Active Substance: RADIUM RA-223 DICHLORIDE
     Indication: METASTASES TO BONE
     Dosage: UNK
     Dates: start: 20171122, end: 20171122
  12. XOFIGO [Suspect]
     Active Substance: RADIUM RA-223 DICHLORIDE
     Indication: METASTASES TO BONE
     Dosage: UNK
     Dates: start: 20171220, end: 20171220
  13. XTANDI [Concomitant]
     Active Substance: ENZALUTAMIDE
     Dosage: UNK
     Dates: start: 20171219
  14. VITAMIN C [Concomitant]
     Active Substance: ASCORBIC ACID
     Dosage: 1000 MG DAILY
     Route: 048
     Dates: start: 20171013
  15. XGEVA [Concomitant]
     Active Substance: DENOSUMAB
     Dosage: UNK
     Route: 058
     Dates: start: 20171013
  16. COMPAZINE [Concomitant]
     Active Substance: PROCHLORPERAZINE MALEATE
     Dosage: 10 MG DAILY
     Route: 048
     Dates: start: 20171013

REACTIONS (10)
  - Lip swelling [None]
  - Haematuria [Not Recovered/Not Resolved]
  - Swelling [None]
  - Swelling face [None]
  - Angioedema [None]
  - Urticaria [None]
  - Flank pain [Not Recovered/Not Resolved]
  - Aphonia [None]
  - Haematuria [Not Recovered/Not Resolved]
  - Haemorrhage urinary tract [Not Recovered/Not Resolved]

NARRATIVE: CASE EVENT DATE: 20171227
